FAERS Safety Report 21911323 (Version 1)
Quarter: 2023Q1

REPORT INFORMATION
  Report Type: Spontaneous
  Country: US (occurrence: US)
  Receive Date: 20230125
  Receipt Date: 20230125
  Transmission Date: 20230417
  Serious: No
  Sender: FDA-Public Use
  Company Number: US-ALLERGAN-2213260US

PATIENT
  Sex: Female

DRUGS (2)
  1. BOTOX [Suspect]
     Active Substance: ONABOTULINUMTOXINA
     Indication: Bruxism
     Dosage: 100 UNITS, SINGLE
     Dates: start: 20220325, end: 20220325
  2. BOTOX [Suspect]
     Active Substance: ONABOTULINUMTOXINA
     Indication: Temporomandibular joint syndrome

REACTIONS (10)
  - Off label use [Unknown]
  - Foreign body sensation in eyes [Unknown]
  - Nasopharyngitis [Recovering/Resolving]
  - Aphonia [Unknown]
  - Dry throat [Not Recovered/Not Resolved]
  - Oropharyngeal pain [Unknown]
  - Asthenia [Unknown]
  - Cough [Unknown]
  - Headache [Not Recovered/Not Resolved]
  - Dyspnoea [Not Recovered/Not Resolved]

NARRATIVE: CASE EVENT DATE: 20220325
